FAERS Safety Report 5517562-3 (Version None)
Quarter: 2007Q4

REPORT INFORMATION
  Report Type: 
  Country: None (occurrence: None)
  Receive Date: 20071114
  Receipt Date: 20071108
  Transmission Date: 20080405
  Serious: Yes (Disabling, Other)
  Sender: FDA-Public Use
  Company Number: US-PFIZER INC-2007078906

PATIENT
  Sex: Female
  Weight: 68.9 kg

DRUGS (7)
  1. CHANTIX [Suspect]
     Indication: SMOKING CESSATION THERAPY
     Route: 048
     Dates: start: 20070909, end: 20070912
  2. CHANTIX [Suspect]
     Indication: TOBACCO USER
  3. DRUG, UNSPECIFIED [Suspect]
     Indication: DEPRESSION
  4. DRUG, UNSPECIFIED [Suspect]
     Indication: CRYING
  5. CELEXA [Concomitant]
     Dosage: DAILY DOSE:20MG
  6. LO/OVRAL [Concomitant]
  7. SYNTHROID [Concomitant]

REACTIONS (4)
  - ACTIVITIES OF DAILY LIVING IMPAIRED [None]
  - CRYING [None]
  - DEPRESSION [None]
  - SEDATION [None]
